FAERS Safety Report 14486366 (Version 5)
Quarter: 2018Q2

REPORT INFORMATION
  Report Type: Report from Study
  Country: US (occurrence: US)
  Receive Date: 20180205
  Receipt Date: 20180423
  Transmission Date: 20180711
  Serious: Yes (Other)
  Sender: FDA-Public Use
  Company Number: US-JNJFOC-20180105843

PATIENT
  Age: 86 Year
  Sex: Male

DRUGS (11)
  1. IMBRUVICA [Suspect]
     Active Substance: IBRUTINIB
     Indication: VENTRICULAR TACHYCARDIA
     Route: 048
     Dates: start: 20171019
  2. PEPCID [Concomitant]
     Active Substance: FAMOTIDINE
     Route: 065
  3. VERAPAMIL [Concomitant]
     Active Substance: VERAPAMIL HYDROCHLORIDE
  4. IMBRUVICA [Suspect]
     Active Substance: IBRUTINIB
     Indication: VENTRICULAR TACHYCARDIA
     Route: 048
     Dates: start: 20171116
  5. AZELASTINE. [Concomitant]
     Active Substance: AZELASTINE HYDROCHLORIDE
  6. IMBRUVICA [Suspect]
     Active Substance: IBRUTINIB
     Indication: WALDENSTROM^S MACROGLOBULINAEMIA
     Route: 048
     Dates: start: 20171116
  7. IMBRUVICA [Suspect]
     Active Substance: IBRUTINIB
     Indication: VENTRICULAR TACHYCARDIA
     Route: 048
     Dates: start: 20171205
  8. ICAPS [Concomitant]
     Active Substance: MINERALS\VITAMINS
     Route: 065
  9. TYLENOL [Concomitant]
     Active Substance: ACETAMINOPHEN
     Route: 065
  10. IMBRUVICA [Suspect]
     Active Substance: IBRUTINIB
     Indication: WALDENSTROM^S MACROGLOBULINAEMIA
     Route: 048
     Dates: start: 20171019
  11. IMBRUVICA [Suspect]
     Active Substance: IBRUTINIB
     Indication: WALDENSTROM^S MACROGLOBULINAEMIA
     Route: 048
     Dates: start: 20171205

REACTIONS (12)
  - Haemoptysis [Unknown]
  - Hypersensitivity [Unknown]
  - Vitreous floaters [Unknown]
  - Vision blurred [Unknown]
  - Weight increased [Unknown]
  - Rhinorrhoea [Unknown]
  - Dry skin [Unknown]
  - Balance disorder [Unknown]
  - Rash [Unknown]
  - Fatigue [Not Recovered/Not Resolved]
  - Loss of consciousness [Not Recovered/Not Resolved]
  - Skin fissures [Unknown]

NARRATIVE: CASE EVENT DATE: 201710
